FAERS Safety Report 9676181 (Version 1)
Quarter: 2013Q4

REPORT INFORMATION
  Report Type: Spontaneous
  Country: US (occurrence: None)
  Receive Date: 20131105
  Receipt Date: 20131105
  Transmission Date: 20140711
  Serious: Yes (Other)
  Sender: FDA-Public Use
  Company Number: 001621908A

PATIENT
  Age: 39 Year
  Sex: Female

DRUGS (2)
  1. MB* ANTIOXIDANT DAY CREME SPF 20 [Suspect]
     Dosage: TWICE DAILY DERMAL
     Dates: start: 20131014, end: 20131021
  2. MB* SKIN BRIGHTENING DECOLLETE+NECK TREATMENT SPF 15 [Suspect]
     Dosage: TWICE DAILY DERMAL
     Dates: start: 20131014, end: 20131021

REACTIONS (3)
  - Rash [None]
  - Urticaria [None]
  - Swelling [None]
